FAERS Safety Report 8924623 (Version 1)
Quarter: 2012Q4

REPORT INFORMATION
  Report Type: 
  Country: FR (occurrence: FR)
  Receive Date: 20121126
  Receipt Date: 20121126
  Transmission Date: 20130627
  Serious: Yes (Hospitalization)
  Sender: FDA-Public Use
  Company Number: FR-ASTRAZENECA-2012SE87130

PATIENT
  Age: 20454 Day
  Sex: Female

DRUGS (2)
  1. XEROQUEL [Suspect]
     Indication: BIPOLAR DISORDER
     Route: 048
  2. XEROQUEL [Suspect]
     Indication: BIPOLAR DISORDER
     Route: 048

REACTIONS (3)
  - Mania [Unknown]
  - Hyperglycaemia [Unknown]
  - Tachycardia [Unknown]
